FAERS Safety Report 6761693-7 (Version None)
Quarter: 2010Q2

REPORT INFORMATION
  Report Type: 
  Country: None (occurrence: None)
  Receive Date: 20100609
  Receipt Date: 20100527
  Transmission Date: 20101027
  Serious: Yes (Other)
  Sender: FDA-Public Use
  Company Number: US-ASTRAZENECA-2010SE26124

PATIENT
  Age: 49 Year
  Sex: Male

DRUGS (6)
  1. SEROQUEL [Suspect]
     Indication: ANXIETY
     Dosage: 25 MG TO 300 MG
     Route: 048
     Dates: start: 20030101
  2. VALIUM [Concomitant]
     Dates: start: 20030101
  3. PRINIVIL [Concomitant]
     Dates: start: 20030101
  4. WELLBUTRIN XL [Concomitant]
     Dates: start: 20030101
  5. CIMBALTA [Concomitant]
     Dates: start: 20060101
  6. LIPITOR [Concomitant]
     Dates: start: 20060101

REACTIONS (9)
  - DIABETES MELLITUS INADEQUATE CONTROL [None]
  - DIABETIC NEPHROPATHY [None]
  - HYPERLIPIDAEMIA [None]
  - NEUROPATHY PERIPHERAL [None]
  - NON-HODGKIN'S LYMPHOMA [None]
  - PERIPHERAL VASCULAR DISORDER [None]
  - RENAL FAILURE CHRONIC [None]
  - SARCOIDOSIS [None]
  - SLEEP APNOEA SYNDROME [None]
